FAERS Safety Report 11257284 (Version 1)
Quarter: 2015Q3

REPORT INFORMATION
  Report Type: Spontaneous
  Country: PT (occurrence: PT)
  Receive Date: 20150709
  Receipt Date: 20150709
  Transmission Date: 20151125
  Serious: Yes (Hospitalization)
  Sender: FDA-Public Use
  Company Number: PT-MYLANLABS-2015M1022251

PATIENT

DRUGS (1)
  1. VINORELBINE [Suspect]
     Active Substance: VINORELBINE\VINORELBINE TARTRATE
     Indication: BREAST CANCER
     Dosage: UNK
     Route: 065
     Dates: start: 201409

REACTIONS (9)
  - Hypoxia [Recovering/Resolving]
  - Respiratory acidosis [Recovering/Resolving]
  - Pulmonary toxicity [Recovering/Resolving]
  - Dyspnoea [Recovering/Resolving]
  - Pneumonitis [Recovering/Resolving]
  - Embolism [Recovering/Resolving]
  - Respiratory failure [Recovering/Resolving]
  - Asthenia [Unknown]
  - Pyrexia [Unknown]
